FAERS Safety Report 12629598 (Version 7)
Quarter: 2017Q2

REPORT INFORMATION
  Report Type: Spontaneous
  Country: BR (occurrence: BR)
  Receive Date: 20160808
  Receipt Date: 20170508
  Transmission Date: 20170830
  Serious: Yes (Other)
  Sender: FDA-Public Use
  Company Number: BR-GLAXOSMITHKLINE-BR2016GSK077295

PATIENT
  Sex: Female
  Weight: 98 kg

DRUGS (11)
  1. PREDNISONE. [Concomitant]
     Active Substance: PREDNISONE
     Indication: PRODUCT USED FOR UNKNOWN INDICATION
     Dosage: UNK
  2. BENLYSTA [Suspect]
     Active Substance: BELIMUMAB
     Dosage: UNK
     Dates: start: 20161228
  3. BENLYSTA [Suspect]
     Active Substance: BELIMUMAB
     Dosage: UNK
     Dates: start: 20170130
  4. CALCIUM CARBONATE. [Concomitant]
     Active Substance: CALCIUM CARBONATE
     Indication: PRODUCT USED FOR UNKNOWN INDICATION
     Dosage: UNK
  5. BENLYSTA [Suspect]
     Active Substance: BELIMUMAB
     Indication: SYSTEMIC LUPUS ERYTHEMATOSUS
     Dosage: 920 MG, UNK
     Dates: start: 20150916
  6. REUQUINOL [Suspect]
     Active Substance: HYDROXYCHLOROQUINE SULFATE
     Indication: PRODUCT USED FOR UNKNOWN INDICATION
     Dosage: UNK
  7. VITAMIN D [Concomitant]
     Active Substance: CHOLECALCIFEROL
  8. BENLYSTA [Suspect]
     Active Substance: BELIMUMAB
     Dosage: UNK
     Dates: start: 20170306
  9. MYCOPHENOLATE MOFETIL. [Concomitant]
     Active Substance: MYCOPHENOLATE MOFETIL
     Indication: PRODUCT USED FOR UNKNOWN INDICATION
     Dosage: UNK
  10. BENLYSTA [Suspect]
     Active Substance: BELIMUMAB
     Dosage: UNK
     Dates: start: 20161128
  11. BENLYSTA [Suspect]
     Active Substance: BELIMUMAB
     Dosage: UNK
     Dates: start: 20170403

REACTIONS (25)
  - Product availability issue [Unknown]
  - Circumstance or information capable of leading to medication error [Not Recovered/Not Resolved]
  - Weight increased [Unknown]
  - Drug dose omission [Unknown]
  - Respiratory disorder [Unknown]
  - Blood test abnormal [Unknown]
  - Influenza [Not Recovered/Not Resolved]
  - Inappropriate schedule of drug administration [Not Recovered/Not Resolved]
  - Local swelling [Unknown]
  - Pain [Unknown]
  - Swelling [Unknown]
  - Underdose [Not Recovered/Not Resolved]
  - Visual impairment [Unknown]
  - Abdominal pain [Not Recovered/Not Resolved]
  - Adverse event [Unknown]
  - Pneumonia [Unknown]
  - Dyspnoea [Unknown]
  - Platelet count decreased [Unknown]
  - Bleeding time prolonged [Unknown]
  - Tachycardia [Unknown]
  - Medication error [Recovered/Resolved]
  - Hypertension [Unknown]
  - Cataract operation [Unknown]
  - Arthralgia [Unknown]
  - Flatulence [Not Recovered/Not Resolved]
